FAERS Safety Report 4344574-8 (Version None)
Quarter: 2004Q1

REPORT INFORMATION
  Report Type: 
  Country: None (occurrence: None)
  Receive Date: 20040325
  Receipt Date: 20040202
  Transmission Date: 20041129
  Serious: No
  Sender: FDA-Public Use
  Company Number: USA031254231

PATIENT
  Age: 84 Year
  Sex: Female
  Weight: 79 kg

DRUGS (13)
  1. FORTEO [Suspect]
     Indication: OSTEOPOROSIS
     Dosage: 20 UG/DAY
     Dates: start: 20031113
  2. CELEBREX [Concomitant]
  3. SYNTHROID [Concomitant]
  4. K-DUR 10 [Concomitant]
  5. HYDROCHLOROTHIAZIDE [Concomitant]
  6. LIPITOR [Concomitant]
  7. NIFEDIPINE [Concomitant]
  8. FERROUS SULFATE TAB [Concomitant]
  9. GLUCOSAMINE [Concomitant]
  10. FISH OIL [Concomitant]
  11. CALCIUM [Concomitant]
  12. ASPIRIN [Concomitant]
  13. TYLENOL [Concomitant]

REACTIONS (3)
  - BLOOD GLUCOSE INCREASED [None]
  - BLOOD SODIUM INCREASED [None]
  - CHROMATURIA [None]
